FAERS Safety Report 7112842-2 (Version None)
Quarter: 2010Q4

REPORT INFORMATION
  Report Type: 
  Country: None (occurrence: None)
  Receive Date: 20101119
  Receipt Date: 20100903
  Transmission Date: 20110411
  Serious: No
  Sender: FDA-Public Use
  Company Number: US-BRISTOL-MYERS SQUIBB COMPANY-15272156

PATIENT
  Sex: Male

DRUGS (2)
  1. AVALIDE [Suspect]
     Dosage: DOSE TAKEN FOR TWO YEARS.
  2. MULTAQ [Suspect]

REACTIONS (1)
  - BLOOD CREATININE INCREASED [None]
